FAERS Safety Report 4744338-7 (Version None)
Quarter: 2005Q3

REPORT INFORMATION
  Report Type: 
  Country: None (occurrence: None)
  Receive Date: 20050811
  Receipt Date: 20050811
  Transmission Date: 20060218
  Serious: Yes (Life-Threatening, Hospitalization, Disabling)
  Sender: FDA-Public Use
  Company Number: None

PATIENT
  Age: 27 Year
  Sex: Female
  Weight: 56.6996 kg

DRUGS (2)
  1. ORTHO EVRA [Suspect]
     Indication: CONTRACEPTION
     Dosage: 1 PATCH    APPLIED WEEKLY    TOPICAL
     Route: 061
     Dates: start: 20041022, end: 20050517
  2. COUMADIN [Concomitant]

REACTIONS (1)
  - PULMONARY EMBOLISM [None]
